FAERS Safety Report 7725558-6 (Version None)
Quarter: 2011Q3

REPORT INFORMATION
  Report Type: 
  Country: None (occurrence: None)
  Receive Date: 20110902
  Receipt Date: 20110822
  Transmission Date: 20111222
  Serious: Yes (Death, Other)
  Sender: FDA-Public Use
  Company Number: PL-JNJFOC-20110812687

PATIENT

DRUGS (9)
  1. BORTEZOMIB [Suspect]
     Route: 065
  2. DOXORUBICIN HCL [Concomitant]
     Route: 065
  3. VINCRISTINE [Concomitant]
     Route: 065
  4. DEXAMETHASONE [Suspect]
     Route: 065
  5. DOXORUBICIN HCL [Suspect]
     Route: 042
  6. DOXORUBICIN HCL [Suspect]
     Indication: LEUKAEMIA PLASMACYTIC
     Route: 042
  7. DEXAMETHASONE [Suspect]
     Indication: LEUKAEMIA PLASMACYTIC
     Route: 065
  8. BORTEZOMIB [Suspect]
     Indication: LEUKAEMIA PLASMACYTIC
     Route: 065
  9. CYCLOPHOSPHAMIDE [Suspect]
     Indication: LEUKAEMIA PLASMACYTIC
     Route: 065

REACTIONS (7)
  - LEUKAEMIA PLASMACYTIC [None]
  - NEUROTOXICITY [None]
  - HAEMATOTOXICITY [None]
  - INFECTION [None]
  - OFF LABEL USE [None]
  - HERPES ZOSTER [None]
  - PERIPHERAL SENSORY NEUROPATHY [None]
